FAERS Safety Report 12984148 (Version 1)
Quarter: 2016Q4

REPORT INFORMATION
  Report Type: Spontaneous
  Country: IT (occurrence: IT)
  Receive Date: 20161129
  Receipt Date: 20161129
  Transmission Date: 20170207
  Serious: Yes (Hospitalization)
  Sender: FDA-Public Use
  Company Number: IT-MYLANLABS-2016M1051037

PATIENT

DRUGS (2)
  1. ACETYLSALICYLIC ACID [Suspect]
     Active Substance: ASPIRIN
     Indication: ANTICOAGULANT THERAPY
     Dosage: UNK
  2. CLOPIDOGREL [Suspect]
     Active Substance: CLOPIDOGREL BISULFATE
     Indication: ANTICOAGULANT THERAPY
     Dosage: UNK

REACTIONS (7)
  - Gastric ulcer [Recovering/Resolving]
  - Melaena [Recovering/Resolving]
  - Ventricular tachycardia [Recovering/Resolving]
  - Anaemia [Recovering/Resolving]
  - Vascular stent restenosis [Recovering/Resolving]
  - Drug ineffective [Recovering/Resolving]
  - Cardiac arrest [Recovering/Resolving]
